FAERS Safety Report 19376966 (Version 2)
Quarter: 2021Q4

REPORT INFORMATION
  Report Type: Spontaneous
  Country: US (occurrence: US)
  Receive Date: 20210605
  Receipt Date: 20211022
  Transmission Date: 20220303
  Serious: Yes (Life-Threatening, Hospitalization)
  Sender: FDA-Public Use
  Company Number: US-DRREDDYS-USA/USA/21/0136312

PATIENT
  Age: 23 Year
  Sex: Male

DRUGS (2)
  1. CITALOPRAM [Suspect]
     Active Substance: CITALOPRAM HYDROBROMIDE
     Indication: Product used for unknown indication
  2. BUPROPION [Suspect]
     Active Substance: BUPROPION
     Indication: Product used for unknown indication

REACTIONS (7)
  - Vasoplegia syndrome [Recovering/Resolving]
  - Acidosis [Recovering/Resolving]
  - Tachyarrhythmia [Recovered/Resolved]
  - Shock [Recovering/Resolving]
  - Ejection fraction decreased [Recovering/Resolving]
  - Cardiac arrest [Recovered/Resolved]
  - Overdose [Recovering/Resolving]
